FAERS Safety Report 21925985 (Version 1)
Quarter: 2023Q1

REPORT INFORMATION
  Report Type: Spontaneous
  Country: AR (occurrence: AR)
  Receive Date: 20230130
  Receipt Date: 20230130
  Transmission Date: 20230418
  Serious: Yes (Hospitalization)
  Sender: FDA-Public Use
  Company Number: AR-MYLANLABS-2023M1008749

PATIENT
  Sex: Male

DRUGS (3)
  1. CLOZAPINE [Suspect]
     Active Substance: CLOZAPINE
     Indication: Product used for unknown indication
     Dosage: 250 MILLIGRAM
     Route: 065
  2. VALPROATE [Concomitant]
     Active Substance: VALPROIC ACID
     Dosage: 400 MILLIGRAM
     Route: 065
  3. LORAZEPAM [Concomitant]
     Active Substance: LORAZEPAM
     Dosage: 2.5 MILLIGRAM
     Route: 065

REACTIONS (4)
  - Faecal disimpaction [Unknown]
  - Headache [Unknown]
  - Constipation [Unknown]
  - Vomiting [Unknown]
